FAERS Safety Report 25571719 (Version 3)
Quarter: 2025Q3

REPORT INFORMATION
  Report Type: Spontaneous
  Country: CA (occurrence: CA)
  Receive Date: 20250717
  Receipt Date: 20250723
  Transmission Date: 20251021
  Serious: Yes (Life-Threatening, Hospitalization, Other)
  Sender: PFIZER
  Company Number: CA-MLMSERVICE-20250704-PI554225-00221-2

PATIENT
  Age: 80 Year
  Sex: Male

DRUGS (15)
  1. SPIRONOLACTONE [Suspect]
     Active Substance: SPIRONOLACTONE
     Indication: Cardiac failure
  2. SPIRONOLACTONE [Suspect]
     Active Substance: SPIRONOLACTONE
     Indication: Arrhythmia induced cardiomyopathy
     Dosage: 25 MG, DAILY (DISCHARGE MEDICATIONS)
  3. SPIRONOLACTONE [Suspect]
     Active Substance: SPIRONOLACTONE
     Indication: Drug interaction
  4. METOPROLOL [Suspect]
     Active Substance: METOPROLOL
     Indication: Cardiac failure
     Dosage: 100 MG EVERY 8 HOURS, RAPID UP-TITRATION
  5. METOPROLOL [Suspect]
     Active Substance: METOPROLOL
     Indication: Arrhythmia induced cardiomyopathy
     Dosage: 100 MG, 2X/DAY (TITRATED)
  6. METOPROLOL [Suspect]
     Active Substance: METOPROLOL
     Indication: Drug interaction
     Dosage: 75 MG, 2X/DAY (DISCHARGE MEDICATIONS)
  7. DAPAGLIFLOZIN [Suspect]
     Active Substance: DAPAGLIFLOZIN
     Indication: Cardiac failure
  8. DAPAGLIFLOZIN [Suspect]
     Active Substance: DAPAGLIFLOZIN
     Indication: Arrhythmia induced cardiomyopathy
     Dosage: 10 MG, DAILY (DISCHARGE MEDICATIONS)
  9. DAPAGLIFLOZIN [Suspect]
     Active Substance: DAPAGLIFLOZIN
     Indication: Drug interaction
  10. PERINDOPRIL [Suspect]
     Active Substance: PERINDOPRIL
     Indication: Cardiac failure
  11. PERINDOPRIL [Suspect]
     Active Substance: PERINDOPRIL
     Indication: Arrhythmia induced cardiomyopathy
     Dosage: 2 MG, DAILY (DISCHARGE MEDICATIONS)
  12. PERINDOPRIL [Suspect]
     Active Substance: PERINDOPRIL
     Indication: Drug interaction
  13. FUROSEMIDE [Concomitant]
     Active Substance: FUROSEMIDE
     Indication: Atrial fibrillation
     Dosage: 20 MG, 1X/DAY
  14. DABIGATRAN [Concomitant]
     Active Substance: DABIGATRAN
     Indication: Anticoagulant therapy
  15. ESCITALOPRAM [Concomitant]
     Active Substance: ESCITALOPRAM OXALATE
     Indication: Atrial fibrillation

REACTIONS (3)
  - Drug titration error [Recovered/Resolved]
  - Sinus bradycardia [Recovered/Resolved]
  - Cardiogenic shock [Recovered/Resolved]
